FAERS Safety Report 4543187-2 (Version None)
Quarter: 2005Q1

REPORT INFORMATION
  Report Type: 
  Country: None (occurrence: None)
  Receive Date: 20050103
  Receipt Date: 20041220
  Transmission Date: 20050727
  Serious: Yes (Hospitalization)
  Sender: FDA-Public Use
  Company Number: US-JNJFOC-20041206125

PATIENT
  Age: 5 Week
  Sex: Male
  Weight: 5 kg

DRUGS (3)
  1. TYLOX [Suspect]
     Indication: DRUG USE FOR UNKNOWN INDICATION
     Dosage: PATIENT WAS ADMINISTERED ONE 5/500 DOSE.
     Route: 049
  2. ACETAMINOPHEN [Concomitant]
     Indication: INJECTION SITE PAIN
  3. SIMETHICONE [Concomitant]
     Route: 049

REACTIONS (12)
  - BRADYCARDIA [None]
  - CHILD ABUSE [None]
  - CYANOSIS [None]
  - DEPRESSED LEVEL OF CONSCIOUSNESS [None]
  - FEEDING DISORDER [None]
  - MEDICATION ERROR [None]
  - MUSCLE RIGIDITY [None]
  - OXYGEN SATURATION DECREASED [None]
  - POISONING [None]
  - RESPIRATORY DISTRESS [None]
  - STATUS EPILEPTICUS [None]
  - STRIDOR [None]
